FAERS Safety Report 6453069-7 (Version None)
Quarter: 2009Q4

REPORT INFORMATION
  Report Type: 
  Country: None (occurrence: None)
  Receive Date: 20091117
  Receipt Date: 20091103
  Transmission Date: 20100525
  Serious: Yes (Death, Hospitalization)
  Sender: FDA-Public Use
  Company Number: 1000009072

PATIENT
  Age: 80 Year
  Sex: Male

DRUGS (11)
  1. CITALOPRAM HYDROBROMIDE [Suspect]
     Indication: DEPRESSION
     Dosage: 10 MG (10 MG, 1 IN 1 D), ORAL
     Route: 048
     Dates: start: 20090714, end: 20090808
  2. PLAVIX (75 MILLIGRAM, TABLETS) [Concomitant]
  3. FUROSEMIDE(40 MILLIGRAM, TABLETS) [Concomitant]
  4. IKOREL(TABLETS) [Concomitant]
  5. CARDICOR (TABLETS) [Concomitant]
  6. COZAAR (100 MILLIGRAM, TABLETS) [Concomitant]
  7. ASPIRIN (75 MILLIGRAM, TABLETS) [Concomitant]
  8. LIPITOR (80 MILLIGRAM) [Concomitant]
  9. ELANTAN LA (50 MILLIGRAM, TABLETS) [Concomitant]
  10. NEXIUM (40 MILLIGRAM, TABLETS) [Concomitant]
  11. TRANSIDERM NITRO (10 MILLIGRAM, POULTICE OR PATCH) [Concomitant]

REACTIONS (4)
  - AGITATION [None]
  - DYSKINESIA [None]
  - HALLUCINATION [None]
  - RESTLESSNESS [None]
